FAERS Safety Report 12600740 (Version 2)
Quarter: 2016Q3

REPORT INFORMATION
  Report Type: Report from Study
  Country: US (occurrence: US)
  Receive Date: 20160727
  Receipt Date: 20160803
  Transmission Date: 20161109
  Serious: Yes (Hospitalization)
  Sender: FDA-Public Use
  Company Number: US-EXELIXIS-CABO-16006167

PATIENT
  Age: 72 Year
  Sex: Male

DRUGS (20)
  1. SIMVASTATIN. [Concomitant]
     Active Substance: SIMVASTATIN
  2. FENOFIBRIC ACID. [Concomitant]
     Active Substance: FENOFIBRIC ACID
  3. NITROSTAT [Concomitant]
     Active Substance: NITROGLYCERIN
  4. COMETRIQ [Suspect]
     Active Substance: CABOZANTINIB S-MALATE
     Indication: RENAL CANCER
     Dosage: 60 MG, QD
     Route: 048
     Dates: start: 20160303, end: 20160630
  5. COMETRIQ [Suspect]
     Active Substance: CABOZANTINIB S-MALATE
     Dosage: 40 MG, QD
     Route: 048
     Dates: start: 20160708
  6. OMEPRAZOLE. [Concomitant]
     Active Substance: OMEPRAZOLE
  7. AMLODIPINE [Concomitant]
     Active Substance: AMLODIPINE BESYLATE
  8. METFORMIN [Concomitant]
     Active Substance: METFORMIN HYDROCHLORIDE
  9. CYCLOBENZAPRINE [Concomitant]
     Active Substance: CYCLOBENZAPRINE
  10. LISINOPRIL. [Concomitant]
     Active Substance: LISINOPRIL
  11. ASPIRIN. [Concomitant]
     Active Substance: ASPIRIN
  12. METOPROLOL. [Concomitant]
     Active Substance: METOPROLOL
  13. POTASSIUM [Concomitant]
     Active Substance: POTASSIUM
  14. DIPHENOXYLATE/ATROPINE [Concomitant]
     Active Substance: ATROPINE\DIPHENOXYLATE
  15. ACETAMINOPHEN AND CODEINE [Concomitant]
     Active Substance: ACETAMINOPHEN\CODEINE PHOSPHATE
  16. MORPHINE SULFATE. [Suspect]
     Active Substance: MORPHINE SULFATE
  17. ALFUZOSIN [Concomitant]
     Active Substance: ALFUZOSIN
  18. MAGNESIUM [Concomitant]
     Active Substance: MAGNESIUM
  19. LEVOTHYROXINE. [Concomitant]
     Active Substance: LEVOTHYROXINE
  20. ZOMETA [Concomitant]
     Active Substance: ZOLEDRONIC ACID

REACTIONS (15)
  - Diarrhoea [Not Recovered/Not Resolved]
  - Pain [Unknown]
  - Dysphonia [Not Recovered/Not Resolved]
  - Fatigue [Not Recovered/Not Resolved]
  - Hair colour changes [Unknown]
  - Renal impairment [Unknown]
  - Decreased appetite [Not Recovered/Not Resolved]
  - Dysgeusia [Not Recovered/Not Resolved]
  - Nausea [Unknown]
  - Vomiting [Unknown]
  - Weight decreased [Unknown]
  - Haemoglobin decreased [Unknown]
  - Off label use [Unknown]
  - Dehydration [Unknown]
  - Agitation [Unknown]

NARRATIVE: CASE EVENT DATE: 20160710
